FAERS Safety Report 9060772 (Version 1)
Quarter: 2013Q1

REPORT INFORMATION
  Report Type: Spontaneous
  Country: ES (occurrence: ES)
  Receive Date: 20130204
  Receipt Date: 20130204
  Transmission Date: 20140127
  Serious: Yes (Other)
  Sender: FDA-Public Use
  Company Number: ES-BAYER-2013-009859

PATIENT
  Sex: Male

DRUGS (1)
  1. BETAFERON [Suspect]

REACTIONS (1)
  - Fat necrosis [None]
